FAERS Safety Report 14707298 (Version 1)
Quarter: 2018Q2

REPORT INFORMATION
  Report Type: Report from Study
  Country: None (occurrence: BE)
  Receive Date: 20180403
  Receipt Date: 20180403
  Transmission Date: 20180711
  Serious: Yes (Other)
  Sender: FDA-Public Use
  Company Number: BE-ABBVIE-18K-013-2307778-00

PATIENT
  Sex: Female

DRUGS (1)
  1. HUMIRA [Suspect]
     Active Substance: ADALIMUMAB
     Indication: RHEUMATOID ARTHRITIS
     Route: 058

REACTIONS (3)
  - Thrombosis [Unknown]
  - Spinal compression fracture [Unknown]
  - Dermatitis psoriasiform [Unknown]

NARRATIVE: CASE EVENT DATE: 2018
